FAERS Safety Report 10174338 (Version 1)
Quarter: 2014Q2

REPORT INFORMATION
  Report Type: Spontaneous
  Country: US (occurrence: US)
  Receive Date: 20140515
  Receipt Date: 20140515
  Transmission Date: 20141212
  Serious: No
  Sender: FDA-Public Use
  Company Number: US-PFIZER INC-2014129572

PATIENT
  Age: 67 Year
  Sex: Female
  Weight: 83.9 kg

DRUGS (4)
  1. PRISTIQ [Suspect]
     Indication: DEPRESSION
     Dosage: UNK
     Dates: start: 2013
  2. SEROQUEL XR [Concomitant]
     Dosage: 50 MG, UNK
  3. TOPIRAMATE [Concomitant]
     Dosage: 50 MG, UNK
  4. LEVOTHYROXINE [Concomitant]
     Dosage: 100 UG, DAILY

REACTIONS (1)
  - Emotional disorder [Not Recovered/Not Resolved]
